FAERS Safety Report 8307651-2 (Version None)
Quarter: 2012Q2

REPORT INFORMATION
  Report Type: 
  Country: None (occurrence: None)
  Receive Date: 20120424
  Receipt Date: 20120424
  Transmission Date: 20120825
  Serious: Yes (Other)
  Sender: FDA-Public Use
  Company Number: None

PATIENT
  Sex: Female
  Weight: 49.895 kg

DRUGS (1)
  1. ESCITALOPRAM [Suspect]

REACTIONS (4)
  - ANXIETY [None]
  - PRODUCT SUBSTITUTION ISSUE [None]
  - TINNITUS [None]
  - DIARRHOEA [None]
